FAERS Safety Report 10267729 (Version 1)
Quarter: 2014Q2

REPORT INFORMATION
  Report Type: Spontaneous
  Country: DE (occurrence: DE)
  Receive Date: 20140630
  Receipt Date: 20140630
  Transmission Date: 20141212
  Serious: Yes (Hospitalization)
  Sender: FDA-Public Use
  Company Number: DE-SA-2014SA082627

PATIENT
  Age: 39 Year
  Sex: Female

DRUGS (14)
  1. MIDAZOLAM [Suspect]
     Indication: ANAESTHESIA
     Route: 065
  2. CEFTAZIDIME [Suspect]
     Indication: ATYPICAL PNEUMONIA
     Route: 065
  3. CLARITHROMYCIN [Suspect]
     Indication: ATYPICAL PNEUMONIA
     Route: 065
  4. RIFAMPICIN [Suspect]
     Indication: PERITONITIS
     Route: 065
  5. MOXIFLOXACIN HYDROCHLORIDE [Suspect]
     Indication: PERITONITIS
     Route: 065
  6. MEROPENEM [Suspect]
     Indication: PERITONITIS
     Route: 065
  7. PROPOFOL [Suspect]
     Indication: ANAESTHESIA
     Route: 065
  8. AMPICILLIN/SULBACTAM [Suspect]
     Indication: PROPHYLAXIS
     Route: 040
  9. PIPERACILLIN [Suspect]
     Indication: PERITONITIS
     Route: 065
  10. TAZOBACTAM [Suspect]
     Indication: PERITONITIS
     Route: 065
  11. IMIPENEM [Suspect]
     Indication: PERITONITIS
     Route: 065
  12. LINEZOLID [Suspect]
     Indication: PERITONITIS
     Route: 065
  13. FENTANYL [Concomitant]
     Indication: ANAESTHESIA
  14. SEVOFLURANE [Concomitant]
     Indication: ANAESTHESIA

REACTIONS (8)
  - Eosinophilic pneumonia acute [Recovered/Resolved]
  - Dyspnoea [Recovered/Resolved]
  - Hypoxia [Recovered/Resolved]
  - Pneumothorax [Recovered/Resolved]
  - Blood pressure decreased [Recovered/Resolved]
  - Heart rate increased [Recovered/Resolved]
  - Respiratory distress [Recovered/Resolved]
  - Respiratory failure [Recovered/Resolved]
